FAERS Safety Report 6471008-X (Version None)
Quarter: 2009Q4

REPORT INFORMATION
  Report Type: 
  Country: None (occurrence: None)
  Receive Date: 20091203
  Receipt Date: 20080314
  Transmission Date: 20100525
  Serious: Yes (Hospitalization, Other)
  Sender: FDA-Public Use
  Company Number: US-ELI_LILLY_AND_COMPANY-US200801000236

PATIENT
  Age: 74 Year
  Sex: Female
  Weight: 43.537 kg

DRUGS (15)
  1. FORTEO [Suspect]
     Indication: OSTEOPOROSIS
     Dates: start: 20070201, end: 20071218
  2. FORTEO [Suspect]
     Dosage: UNK, UNK
     Dates: end: 20080205
  3. METHENAMINE MANDELATE [Concomitant]
  4. DIOVAN [Concomitant]
  5. CELEBREX [Concomitant]
  6. ASPIRIN [Concomitant]
  7. VITAMIN D [Concomitant]
  8. CALCIUM [Concomitant]
  9. THYROID TAB [Concomitant]
  10. RESTASIS [Concomitant]
  11. FOLIC ACID [Concomitant]
  12. PLAVIX [Concomitant]
  13. LORAZEPAM [Concomitant]
  14. CARDIZEM LA [Concomitant]
  15. HYZAAR [Concomitant]

REACTIONS (6)
  - BLOOD PRESSURE INCREASED [None]
  - CHEST DISCOMFORT [None]
  - CORONARY ARTERY OCCLUSION [None]
  - DIZZINESS [None]
  - FATIGUE [None]
  - NAUSEA [None]
